FAERS Safety Report 7590352-6 (Version None)
Quarter: 2011Q3

REPORT INFORMATION
  Report Type: 
  Country: None (occurrence: None)
  Receive Date: 20110705
  Receipt Date: 20110623
  Transmission Date: 20111222
  Serious: Yes (Other)
  Sender: FDA-Public Use
  Company Number: GB-ELI_LILLY_AND_COMPANY-GBS030613319

PATIENT
  Age: 67 Year
  Sex: Male
  Weight: 112 kg

DRUGS (2)
  1. TADALAFIL [Suspect]
     Indication: ERECTILE DYSFUNCTION
     Dosage: 10 MG, UNKNOWN
     Route: 048
     Dates: start: 20030521, end: 20030521
  2. OXYTETRACYCLINE [Concomitant]
     Indication: ROSACEA
     Dosage: 500 MG, UNKNOWN
     Route: 048
     Dates: start: 19990101

REACTIONS (1)
  - DEAFNESS BILATERAL [None]
